FAERS Safety Report 25430431 (Version 1)
Quarter: 2025Q2

REPORT INFORMATION
  Report Type: Spontaneous
  Country: US (occurrence: None)
  Receive Date: 20250612
  Receipt Date: 20250612
  Transmission Date: 20250717
  Serious: Yes (Other)
  Sender: FDA-CTU
  Company Number: None

PATIENT
  Sex: Male

DRUGS (2)
  1. ENBREL [Suspect]
     Active Substance: ETANERCEPT
  2. ENBREL [Concomitant]
     Active Substance: ETANERCEPT

REACTIONS (3)
  - Headache [None]
  - Eye pain [None]
  - Visual impairment [None]
